FAERS Safety Report 25256280 (Version 1)
Quarter: 2025Q2

REPORT INFORMATION
  Report Type: Spontaneous
  Country: US (occurrence: US)
  Receive Date: 20250430
  Receipt Date: 20250430
  Transmission Date: 20250717
  Serious: No
  Sender: HIKMA
  Company Number: US-HIKMA PHARMACEUTICALS USA INC.-US-H14001-25-01360

PATIENT
  Sex: Female

DRUGS (8)
  1. FAMOTIDINE [Suspect]
     Active Substance: FAMOTIDINE
     Indication: Product used for unknown indication
     Route: 065
  2. KEPPRA [Suspect]
     Active Substance: LEVETIRACETAM
     Indication: Product used for unknown indication
     Route: 065
  3. PREDNISONE [Suspect]
     Active Substance: PREDNISONE
     Indication: Product used for unknown indication
     Route: 065
  4. VIGAFYDE [Suspect]
     Active Substance: VIGABATRIN
     Indication: Product used for unknown indication
     Dosage: 2 MILLILITER, BID
     Route: 048
     Dates: start: 20250130
  5. VIGAFYDE [Suspect]
     Active Substance: VIGABATRIN
     Dosage: 3 MILLILITER, BID
     Route: 048
  6. VIGAFYDE [Suspect]
     Active Substance: VIGABATRIN
     Dosage: 4 MILLILITER, BID
     Route: 048
  7. VIGAFYDE [Suspect]
     Active Substance: VIGABATRIN
     Dosage: 5 MILLILITER, BID
     Route: 048
  8. VIGAFYDE [Suspect]
     Active Substance: VIGABATRIN
     Dosage: 6 MILLILITER, BID
     Route: 048

REACTIONS (2)
  - Fatigue [Unknown]
  - Irritability [Unknown]
